FAERS Safety Report 13831251 (Version 2)
Quarter: 2017Q3

REPORT INFORMATION
  Report Type: Spontaneous
  Country: KR (occurrence: KR)
  Receive Date: 20170803
  Receipt Date: 20170804
  Transmission Date: 20171127
  Serious: Yes (Hospitalization, Other)
  Sender: FDA-Public Use
  Company Number: KR-009507513-1609KOR005130

PATIENT
  Age: 56 Year
  Sex: Male
  Weight: 60.5 kg

DRUGS (53)
  1. EMEND (FOSAPREPITANT DIMEGLUMINE) [Suspect]
     Active Substance: FOSAPREPITANT DIMEGLUMINE
     Dosage: 150 MG, ONCE
     Route: 042
     Dates: start: 20160914, end: 20160914
  2. DOXORUBICIN HYDROCHLORIDE. [Concomitant]
     Active Substance: DOXORUBICIN HYDROCHLORIDE
     Dosage: 75 MG, ONCE, CYCLE 5
     Route: 042
     Dates: start: 20161206, end: 20161206
  3. VINCRISTINE SULFATE. [Concomitant]
     Active Substance: VINCRISTINE SULFATE
     Dosage: 2 MG, ONCE, CYCLE 2 (STRENGTH: 1 MG/ML 2 ML)
     Route: 042
     Dates: start: 20160914, end: 20160914
  4. MABTHERA [Concomitant]
     Active Substance: RITUXIMAB
     Dosage: 580 MG, ONCE, CYCLE 3
     Route: 042
     Dates: start: 20161006, end: 20161006
  5. MABTHERA [Concomitant]
     Active Substance: RITUXIMAB
     Dosage: 580 MG, ONCE, CYCLE 5
     Route: 042
     Dates: start: 20161206, end: 20161206
  6. SOLONDO [Concomitant]
     Active Substance: PREDNISOLONE
     Dosage: 40 MG FOR MORNING AND 30 MG FOR LUNCH AND DINNER
     Route: 048
     Dates: start: 20161006, end: 20161010
  7. ALOXI [Concomitant]
     Active Substance: PALONOSETRON HYDROCHLORIDE
     Indication: PREMEDICATION
     Dosage: 5 ML, ONCE
     Route: 042
     Dates: start: 20160914, end: 20160914
  8. FUROSEMIDE. [Concomitant]
     Active Substance: FUROSEMIDE
     Indication: OEDEMA
     Dosage: 40 MG, QD
     Route: 048
     Dates: end: 20170111
  9. EMEND (FOSAPREPITANT DIMEGLUMINE) [Suspect]
     Active Substance: FOSAPREPITANT DIMEGLUMINE
     Indication: PROPHYLAXIS OF NAUSEA AND VOMITING
     Dosage: 150 MG, ONCE
     Route: 042
     Dates: start: 20160822, end: 20160822
  10. VINCRISTINE SULFATE. [Concomitant]
     Active Substance: VINCRISTINE SULFATE
     Dosage: 2 MG, ONCE, CYCLE 4 (STRENGTH: 1 MG/ML 2 ML)
     Route: 042
     Dates: start: 20161109, end: 20161109
  11. ALOXI [Concomitant]
     Active Substance: PALONOSETRON HYDROCHLORIDE
     Dosage: 5 ML, ONCE
     Route: 042
     Dates: start: 20161109, end: 20161109
  12. HEPA-MERZ [Concomitant]
     Indication: HEPATIC CIRRHOSIS
     Dosage: 1 PACKAGE, BID
     Route: 048
     Dates: start: 20160817
  13. ENDOXAN [Concomitant]
     Active Substance: CYCLOPHOSPHAMIDE
     Dosage: 1165 MG, ONCE, CYCLE 4
     Route: 042
     Dates: start: 20161109, end: 20161109
  14. DOXORUBICIN HYDROCHLORIDE. [Concomitant]
     Active Substance: DOXORUBICIN HYDROCHLORIDE
     Dosage: 55 MG, ONCE, CYCLE 6
     Route: 042
     Dates: start: 20170104, end: 20170104
  15. VINCRISTINE SULFATE. [Concomitant]
     Active Substance: VINCRISTINE SULFATE
     Dosage: 1.6 MG, ONCE, CYCLE 6 (STRENGTH: 1 MG/ML 2 ML)
     Route: 042
     Dates: start: 20170104, end: 20170104
  16. ALOXI [Concomitant]
     Active Substance: PALONOSETRON HYDROCHLORIDE
     Dosage: 5 ML, ONCE
     Route: 042
     Dates: start: 20170104, end: 20170104
  17. GODEX CAP [Concomitant]
     Indication: HEPATIC CIRRHOSIS
     Dosage: 1 CAPSULE, BID
     Route: 048
     Dates: start: 20160818, end: 20161228
  18. VINCRISTINE SULFATE. [Concomitant]
     Active Substance: VINCRISTINE SULFATE
     Dosage: 2 MG, ONCE, CYCLE 3 (STRENGTH: 1 MG/ML 2 ML)
     Route: 042
     Dates: start: 20161006, end: 20161006
  19. MABTHERA [Concomitant]
     Active Substance: RITUXIMAB
     Dosage: 580 MG, ONCE, CYCLE 2
     Route: 042
     Dates: start: 20160914, end: 20160914
  20. MABTHERA [Concomitant]
     Active Substance: RITUXIMAB
     Dosage: 580 MG, ONCE, CYCLE 4
     Route: 042
     Dates: start: 20161109, end: 20161109
  21. SOLONDO [Concomitant]
     Active Substance: PREDNISOLONE
     Dosage: 40 MG FOR MORNING AND 30 MG FOR LUNCH AND DINNER
     Route: 048
     Dates: start: 20161109, end: 20161113
  22. SOLONDO [Concomitant]
     Active Substance: PREDNISOLONE
     Dosage: 40 MG FOR MORNING AND 30 MG FOR LUNCH AND DINNER
     Route: 048
     Dates: start: 20161206, end: 20161210
  23. ALOXI [Concomitant]
     Active Substance: PALONOSETRON HYDROCHLORIDE
     Indication: PROPHYLAXIS OF NAUSEA AND VOMITING
     Dosage: 0.25 MG, ONCE
     Route: 042
     Dates: start: 20160822, end: 20160822
  24. VIREAD [Concomitant]
     Active Substance: TENOFOVIR DISOPROXIL FUMARATE
     Indication: PROPHYLAXIS
     Dosage: 300 MG, QD
     Route: 048
     Dates: start: 20160811
  25. SPIRACTON [Concomitant]
     Active Substance: SPIRONOLACTONE
     Indication: OEDEMA
     Dosage: 50 MG (2 TABLETS), BID
     Route: 048
     Dates: end: 20161005
  26. STILLEN (CHINESE MUGWORT) [Concomitant]
     Indication: GASTRITIS PROPHYLAXIS
     Dosage: 60 MG (1 TABLET), TID
     Route: 048
     Dates: start: 20160817, end: 20160817
  27. DOXORUBICIN HYDROCHLORIDE. [Concomitant]
     Active Substance: DOXORUBICIN HYDROCHLORIDE
     Dosage: 75 MG, ONCE, CYCLE 2
     Route: 042
     Dates: start: 20160914, end: 20160914
  28. DOXORUBICIN HYDROCHLORIDE. [Concomitant]
     Active Substance: DOXORUBICIN HYDROCHLORIDE
     Dosage: 75 MG, ONCE, CYCLE 4
     Route: 042
     Dates: start: 20161109, end: 20161109
  29. VINCRISTINE SULFATE. [Concomitant]
     Active Substance: VINCRISTINE SULFATE
     Dosage: 2 MG, ONCE, CYCLE 5 (STRENGTH: 1 MG/ML 2 ML)
     Route: 042
     Dates: start: 20161206, end: 20161206
  30. SOLONDO [Concomitant]
     Active Substance: PREDNISOLONE
     Indication: PREMEDICATION
     Dosage: TID, 40 MG FOR MORNING AND 30 MG FOR LUNCH AND DINNER
     Route: 048
     Dates: start: 20160914, end: 20160918
  31. NEULASTA [Concomitant]
     Active Substance: PEGFILGRASTIM
     Indication: PROPHYLAXIS
     Dosage: 6 MG, QD, AFTER EVERY CHEMOTHERAPY
     Route: 058
     Dates: start: 20160824, end: 20170106
  32. EMEND (FOSAPREPITANT DIMEGLUMINE) [Suspect]
     Active Substance: FOSAPREPITANT DIMEGLUMINE
     Dosage: 150 MG, ONCE
     Route: 042
     Dates: start: 20161109, end: 20161109
  33. ENDOXAN [Concomitant]
     Active Substance: CYCLOPHOSPHAMIDE
     Dosage: 1165 MG, ONCE, CYCLE 3
     Route: 042
     Dates: start: 20161006, end: 20161006
  34. DOXORUBICIN HYDROCHLORIDE. [Concomitant]
     Active Substance: DOXORUBICIN HYDROCHLORIDE
     Indication: DIFFUSE LARGE B-CELL LYMPHOMA
     Dosage: 80 MG, ONCE, CYCLE 1
     Route: 042
     Dates: start: 20160822, end: 20160822
  35. VINCRISTINE SULFATE. [Concomitant]
     Active Substance: VINCRISTINE SULFATE
     Indication: DIFFUSE LARGE B-CELL LYMPHOMA
     Dosage: 2 MG, ONCE, CYCLE 1 (STRENGTH: 1 MG/ML 2 ML)
     Route: 042
     Dates: start: 20160822, end: 20160822
  36. MABTHERA [Concomitant]
     Active Substance: RITUXIMAB
     Indication: DIFFUSE LARGE B-CELL LYMPHOMA
     Dosage: 600 MG, ONCE, CYCLE 1
     Route: 042
     Dates: start: 20160822, end: 20160822
  37. ALOXI [Concomitant]
     Active Substance: PALONOSETRON HYDROCHLORIDE
     Dosage: 5 ML, ONCE
     Route: 042
     Dates: start: 20161006, end: 20161006
  38. URSA TABLETS [Concomitant]
     Indication: HEPATIC CIRRHOSIS
     Dosage: 100 MG (1 TABLET), TID
     Route: 048
     Dates: start: 20160818
  39. EMEND (FOSAPREPITANT DIMEGLUMINE) [Suspect]
     Active Substance: FOSAPREPITANT DIMEGLUMINE
     Dosage: 150 MG, ONCE
     Route: 042
     Dates: start: 20170104, end: 20170104
  40. ENDOXAN [Concomitant]
     Active Substance: CYCLOPHOSPHAMIDE
     Indication: DIFFUSE LARGE B-CELL LYMPHOMA
     Dosage: 1210 MG, ONCE, CYCLE 1
     Route: 042
     Dates: start: 20160822, end: 20160822
  41. ENDOXAN [Concomitant]
     Active Substance: CYCLOPHOSPHAMIDE
     Dosage: 1165 MG, ONCE, CYCLE 5
     Route: 042
     Dates: start: 20161206, end: 20161206
  42. ENDOXAN [Concomitant]
     Active Substance: CYCLOPHOSPHAMIDE
     Dosage: 875 MG, ONCE, CYCLE 6
     Route: 042
     Dates: start: 20170104, end: 20170104
  43. SOLONDO [Concomitant]
     Active Substance: PREDNISOLONE
     Dosage: 40 MG FOR MORNING AND 30 MG FOR LUNCH AND DINNER
     Route: 048
     Dates: start: 20170104, end: 20170108
  44. SOLETON [Concomitant]
     Active Substance: ZALTOPROFEN
     Indication: PROPHYLAXIS
     Dosage: 80 MG, TID
     Route: 048
     Dates: start: 20160817, end: 20160817
  45. EMEND (FOSAPREPITANT DIMEGLUMINE) [Suspect]
     Active Substance: FOSAPREPITANT DIMEGLUMINE
     Dosage: 150 MG, ONCE
     Route: 042
     Dates: start: 20161006, end: 20161006
  46. EMEND (FOSAPREPITANT DIMEGLUMINE) [Suspect]
     Active Substance: FOSAPREPITANT DIMEGLUMINE
     Dosage: 150 MG, ONCE
     Route: 042
     Dates: start: 20161206, end: 20161206
  47. ENDOXAN [Concomitant]
     Active Substance: CYCLOPHOSPHAMIDE
     Dosage: 1160 MG, ONCE, CYCLE 2
     Route: 042
     Dates: start: 20160914, end: 20160914
  48. DOXORUBICIN HYDROCHLORIDE. [Concomitant]
     Active Substance: DOXORUBICIN HYDROCHLORIDE
     Dosage: 75 MG, ONCE, CYCLE 3
     Route: 042
     Dates: start: 20161006, end: 20161006
  49. MABTHERA [Concomitant]
     Active Substance: RITUXIMAB
     Dosage: 580 MG, ONCE, CYCLE 6
     Route: 042
     Dates: start: 20170104, end: 20170104
  50. SOLONDO [Concomitant]
     Active Substance: PREDNISOLONE
     Indication: PROPHYLAXIS OF NAUSEA AND VOMITING
     Dosage: TID, 40 MG FOR MORNING AND 30 MG FOR LUNCH AND DINNER
     Route: 048
     Dates: start: 20160819, end: 20160823
  51. ALOXI [Concomitant]
     Active Substance: PALONOSETRON HYDROCHLORIDE
     Dosage: 5 ML, ONCE
     Route: 042
     Dates: start: 20161206, end: 20161206
  52. FAMOTIDINE. [Concomitant]
     Active Substance: FAMOTIDINE
     Indication: PROPHYLAXIS
     Dosage: 20 MG, BID
     Route: 048
     Dates: start: 20160822, end: 20170108
  53. TACENOL [Concomitant]
     Indication: PROPHYLAXIS
     Dosage: 650 MG, QD
     Route: 048
     Dates: start: 20160822, end: 20160914

REACTIONS (7)
  - Febrile neutropenia [Recovered/Resolved]
  - Diarrhoea [Recovered/Resolved]
  - Neutropenia [Recovered/Resolved]
  - Cellulitis [Recovered/Resolved]
  - Oral candidiasis [Recovered/Resolved]
  - Hyponatraemia [Recovered/Resolved]
  - Cough [Recovered/Resolved]

NARRATIVE: CASE EVENT DATE: 20160830
